FAERS Safety Report 13668654 (Version 1)
Quarter: 2017Q2

REPORT INFORMATION
  Report Type: Spontaneous
  Country: US (occurrence: US)
  Receive Date: 20170620
  Receipt Date: 20170620
  Transmission Date: 20170830
  Serious: Yes (Other)
  Sender: FDA-Public Use
  Company Number: None

PATIENT
  Age: 62 Year
  Sex: Male
  Weight: 91.9 kg

DRUGS (1)
  1. OXALIPLATIN 100MG [Suspect]
     Active Substance: OXALIPLATIN
     Indication: GASTRIC CANCER
     Route: 042
     Dates: start: 20150302, end: 20151026

REACTIONS (5)
  - Chest pain [None]
  - Chills [None]
  - Nausea [None]
  - Pruritus generalised [None]
  - Infusion related reaction [None]

NARRATIVE: CASE EVENT DATE: 20170608
